FAERS Safety Report 25863434 (Version 1)
Quarter: 2025Q3

REPORT INFORMATION
  Report Type: Spontaneous
  Country: US (occurrence: US)
  Receive Date: 20250930
  Receipt Date: 20250930
  Transmission Date: 20251020
  Serious: Yes (Other)
  Sender: RANBAXY
  Company Number: US-SUN PHARMACEUTICAL INDUSTRIES INC-2025R1-528873

PATIENT
  Sex: Female

DRUGS (3)
  1. TRAMADOL [Suspect]
     Active Substance: TRAMADOL
     Indication: Product used for unknown indication
     Route: 065
  2. DUPILUMAB [Suspect]
     Active Substance: DUPILUMAB
     Indication: Asthma
     Dosage: 300 MILLIGRAM PER MILLILITRE, 1/WEEK
     Route: 058
     Dates: start: 202502
  3. NUPLAZID [Concomitant]
     Active Substance: PIMAVANSERIN TARTRATE
     Indication: Psychotic disorder
     Route: 065

REACTIONS (5)
  - Hallucination [Unknown]
  - Drug hypersensitivity [Unknown]
  - Urticaria [Unknown]
  - Rash [Unknown]
  - Pruritus [Unknown]

NARRATIVE: CASE EVENT DATE: 20250101
